FAERS Safety Report 9955482 (Version 2)
Quarter: 2014Q1

REPORT INFORMATION
  Report Type: Report from Study
  Country: US (occurrence: US)
  Receive Date: 20140304
  Receipt Date: 20140304
  Transmission Date: 20141002
  Serious: Yes (Hospitalization)
  Sender: FDA-Public Use
  Company Number: US-ABBVIE-13P-163-1057306-00

PATIENT
  Age: 77 Year
  Sex: Female

DRUGS (2)
  1. HUMIRA [Suspect]
     Indication: PRODUCT USED FOR UNKNOWN INDICATION
     Dates: start: 201301
  2. HUMIRA [Suspect]

REACTIONS (5)
  - Viral infection [Unknown]
  - Cystitis [Unknown]
  - Fungal infection [Unknown]
  - Diarrhoea [Unknown]
  - Latent tuberculosis [Unknown]
